FAERS Safety Report 22171314 (Version 3)
Quarter: 2023Q2

REPORT INFORMATION
  Report Type: Spontaneous
  Country: US (occurrence: US)
  Receive Date: 20230404
  Receipt Date: 20230420
  Transmission Date: 20230722
  Serious: Yes (Disabling, Other)
  Sender: FDA-Public Use
  Company Number: US-009507513-2303USA010307

PATIENT
  Sex: Male
  Weight: 146.94 kg

DRUGS (3)
  1. KEYTRUDA [Suspect]
     Active Substance: PEMBROLIZUMAB
     Indication: Non-small cell lung cancer
     Dosage: UNK
     Dates: start: 2019
  2. KEYTRUDA [Suspect]
     Active Substance: PEMBROLIZUMAB
     Dosage: 300 MILLIGRAM, Q3W
     Route: 042
     Dates: start: 20220727, end: 20230131
  3. PEMETREXED [Suspect]
     Active Substance: PEMETREXED
     Dosage: UNK

REACTIONS (7)
  - Malignant neoplasm progression [Not Recovered/Not Resolved]
  - Radiotherapy to brain [Unknown]
  - Product use issue [Unknown]
  - Emotional distress [Unknown]
  - Drug ineffective [Unknown]
  - Pain [Unknown]
  - Incorrect product administration duration [Unknown]

NARRATIVE: CASE EVENT DATE: 20230101
